FAERS Safety Report 8427386-5 (Version None)
Quarter: 2012Q2

REPORT INFORMATION
  Report Type: 
  Country: None (occurrence: None)
  Receive Date: 20120611
  Receipt Date: 20120605
  Transmission Date: 20120825
  Serious: Yes (Hospitalization)
  Sender: FDA-Public Use
  Company Number: FR-MERCK-1206FRA00013

PATIENT
  Age: 74 Year
  Sex: Male

DRUGS (3)
  1. DARBEPOETIN ALFA [Concomitant]
     Route: 058
  2. MECTIZAN [Suspect]
     Indication: ACARODERMATITIS
     Route: 048
     Dates: start: 20120330, end: 20120330
  3. BENZYL BENZOATE [Suspect]
     Indication: ACARODERMATITIS
     Route: 061
     Dates: start: 20120329, end: 20120330

REACTIONS (3)
  - EOSINOPHILIA [None]
  - NEUTROPHILIA [None]
  - ACUTE GENERALISED EXANTHEMATOUS PUSTULOSIS [None]
